FAERS Safety Report 10388036 (Version 3)
Quarter: 2014Q4

REPORT INFORMATION
  Report Type: Report from Study
  Country: JP (occurrence: JP)
  Receive Date: 20140815
  Receipt Date: 20141010
  Transmission Date: 20150528
  Serious: Yes (Death, Hospitalization)
  Sender: FDA-Public Use
  Company Number: JP-BAYER-2014-073802

PATIENT
  Age: 78 Year
  Sex: Male
  Weight: 47 kg

DRUGS (10)
  1. HIRUDOID [Concomitant]
     Active Substance: GLYCOSAMINOGLYCANS
     Indication: DRUG TOXICITY PROPHYLAXIS
     Dosage: UNK, QS
     Route: 061
  2. KERATINAMIN [Concomitant]
     Active Substance: UREA
     Indication: DRUG TOXICITY PROPHYLAXIS
     Dosage: UNK, QS
     Route: 061
  3. MYSER [Concomitant]
     Active Substance: DIFLUPREDNATE
     Indication: DRUG TOXICITY PROPHYLAXIS
     Dosage: UNK, QS
     Route: 048
     Dates: start: 20140109
  4. KERATINAMIN [Concomitant]
     Active Substance: UREA
     Indication: PALMAR-PLANTAR ERYTHRODYSAESTHESIA SYNDROME
  5. REGORAFENIB [Suspect]
     Active Substance: REGORAFENIB
     Indication: COLON CANCER
     Dosage: 120 MG, QD
     Dates: start: 20140206, end: 20140209
  6. HIRUDOID [Concomitant]
     Active Substance: GLYCOSAMINOGLYCANS
     Indication: PALMAR-PLANTAR ERYTHRODYSAESTHESIA SYNDROME
  7. AMLODIN [Concomitant]
     Active Substance: AMLODIPINE BESYLATE
     Indication: HYPERTENSION
     Dosage: DAILY DOSE 5 MG
     Route: 048
     Dates: end: 20140318
  8. REGORAFENIB [Suspect]
     Active Substance: REGORAFENIB
     Indication: COLON CANCER
     Dosage: 160 MG, QD
     Route: 048
     Dates: start: 20140107, end: 20140114
  9. REGORAFENIB [Suspect]
     Active Substance: REGORAFENIB
     Indication: COLON CANCER
     Dosage: 120 MG, QD
     Dates: start: 20140123, end: 20140129
  10. MYSER [Concomitant]
     Active Substance: DIFLUPREDNATE
     Indication: PALMAR-PLANTAR ERYTHRODYSAESTHESIA SYNDROME

REACTIONS (13)
  - Palmar-plantar erythrodysaesthesia syndrome [Recovering/Resolving]
  - Diarrhoea [Recovered/Resolved]
  - Nausea [Recovered/Resolved]
  - Constipation [Recovered/Resolved]
  - Colon cancer [Fatal]
  - Decreased appetite [Not Recovered/Not Resolved]
  - Stomatitis [Recovering/Resolving]
  - Fatigue [Not Recovered/Not Resolved]
  - Gamma-glutamyltransferase increased [Recovering/Resolving]
  - Pyrexia [Not Recovered/Not Resolved]
  - Blood alkaline phosphatase increased [Not Recovered/Not Resolved]
  - C-reactive protein increased [Recovering/Resolving]
  - Hypertension [Recovered/Resolved]

NARRATIVE: CASE EVENT DATE: 20140107
